FAERS Safety Report 8988351 (Version 1)
Quarter: 2012Q4

REPORT INFORMATION
  Report Type: Spontaneous
  Country: GB (occurrence: None)
  Receive Date: 20121218
  Receipt Date: 20121218
  Transmission Date: 20130627
  Serious: Yes (Other)
  Sender: FDA-Public Use
  Company Number: AUR-APL-2012-05356

PATIENT
  Age: 41 Year
  Sex: Male

DRUGS (5)
  1. QUETIAPINE [Suspect]
     Indication: BIPOLAR DISORDER
  2. CITALOPRAM (CITALOPRAM) [Suspect]
     Indication: DEPRESSION
  3. LAMOTRIGINE (LAMOTRIGINE) [Suspect]
     Indication: BIPOLAR DISORDER
  4. FLUOXETINE [Suspect]
     Indication: BIPOLAR DISORDER
  5. VALPROATE (VALPROATE SODIUM) [Concomitant]
     Indication: BIPOLAR DISORDER

REACTIONS (12)
  - Epilepsy [None]
  - Migraine [None]
  - Activities of daily living impaired [None]
  - Palpitations [None]
  - Hyperhidrosis [None]
  - Suicide attempt [None]
  - Bipolar disorder [None]
  - Intentional overdose [None]
  - Alcohol use [None]
  - Eczema [None]
  - Drug ineffective [None]
  - Weight decreased [None]
